FAERS Safety Report 7020108-4 (Version None)
Quarter: 2010Q3

REPORT INFORMATION
  Report Type: 
  Country: None (occurrence: None)
  Receive Date: 20100929
  Receipt Date: 20100517
  Transmission Date: 20110219
  Serious: Yes (Other)
  Sender: FDA-Public Use
  Company Number: US-ASTRAZENECA-2009SE16687

PATIENT
  Age: 12827 Day
  Sex: Female

DRUGS (14)
  1. SEROQUEL [Suspect]
     Dosage: 300 TO 400 MG TAB
     Route: 048
     Dates: start: 20061016
  2. ATENOLOL [Concomitant]
     Dates: start: 20061016
  3. TRAZODONE [Concomitant]
     Dates: start: 20061016
  4. LOVASTATIN [Concomitant]
     Dates: start: 20061016
  5. SINGULAIR [Concomitant]
     Dates: start: 20061016
  6. TIZANIDINE HCL [Concomitant]
     Dates: start: 20061016
  7. CYMBALTA [Concomitant]
     Dates: start: 20061016
  8. GABAPENTIN [Concomitant]
     Dosage: 300 TO 400 MG
     Dates: start: 20061016
  9. ALPRAZOLAM [Concomitant]
     Dates: start: 20061016
  10. CLONAZEPAM [Concomitant]
     Dosage: 0.5 TO 1 MG TABLET
     Dates: start: 20060921
  11. PIROXICAM [Concomitant]
     Dates: start: 20061115
  12. BISACODYL [Concomitant]
     Dates: start: 20061115
  13. CHLORZOXAZONE [Concomitant]
     Dates: start: 20070117
  14. DEPAKOTE [Concomitant]
     Dates: start: 20070118

REACTIONS (4)
  - DIABETES MELLITUS INADEQUATE CONTROL [None]
  - DIABETIC NEUROPATHY [None]
  - TYPE 1 DIABETES MELLITUS [None]
  - TYPE 2 DIABETES MELLITUS [None]
